FAERS Safety Report 6771708-8 (Version None)
Quarter: 2010Q2

REPORT INFORMATION
  Report Type: 
  Country: None (occurrence: None)
  Receive Date: 20100616
  Receipt Date: 20090424
  Transmission Date: 20101027
  Serious: No
  Sender: FDA-Public Use
  Company Number: US-ASTRAZENECA-2009UW10378

PATIENT
  Age: 66 Year
  Sex: Female

DRUGS (4)
  1. ATACAND [Suspect]
     Indication: HYPERTENSION
     Route: 048
     Dates: start: 20090307
  2. NEXIUM [Concomitant]
  3. CRESTOR [Concomitant]
  4. LASIX [Concomitant]

REACTIONS (1)
  - BLOOD PRESSURE INCREASED [None]
